FAERS Safety Report 24899201 (Version 1)
Quarter: 2025Q1

REPORT INFORMATION
  Report Type: Spontaneous
  Country: FR (occurrence: FR)
  Receive Date: 20250129
  Receipt Date: 20250129
  Transmission Date: 20250408
  Serious: Yes (Hospitalization)
  Sender: RANBAXY
  Company Number: FR-SUN PHARMACEUTICAL INDUSTRIES LTD-2025RR-490550

PATIENT
  Age: 40 Year
  Sex: Male
  Weight: 62 kg

DRUGS (7)
  1. ACETAMINOPHEN [Suspect]
     Active Substance: ACETAMINOPHEN
     Indication: Pain
     Route: 048
     Dates: start: 20241108
  2. PENICILLIN G BENZATHINE [Suspect]
     Active Substance: PENICILLIN G BENZATHINE
     Indication: Syphilis
     Dosage: 1 DOSAGE FORM, WEEKLY 2 DOSES
     Route: 030
     Dates: start: 20241109, end: 20241116
  3. BACTRIM [Suspect]
     Active Substance: SULFAMETHOXAZOLE\TRIMETHOPRIM
     Indication: Infection prophylaxis
     Dosage: 400 MILLIGRAM, DAILY 400/80MG/J PROPHYLAXIE
     Route: 048
     Dates: start: 20241108, end: 20241112
  4. BACTRIM [Suspect]
     Active Substance: SULFAMETHOXAZOLE\TRIMETHOPRIM
     Dosage: 800 MILLIGRAM, DAILY 800/160MG/J INFECTION SAMS
     Route: 048
     Dates: start: 20241112, end: 20241114
  5. BACTRIM [Suspect]
     Active Substance: SULFAMETHOXAZOLE\TRIMETHOPRIM
     Dosage: 400 MILLIGRAM, DAILY 400/80MG/J PROPHYLAXIE
     Route: 048
     Dates: start: 20241115, end: 20241121
  6. RIFATER [Suspect]
     Active Substance: ISONIAZID\PYRAZINAMIDE\RIFAMPIN
     Indication: Tuberculosis
     Dosage: 6 DOSAGE FORM, DAILY 6CP/J
     Route: 048
     Dates: start: 20241114, end: 20241121
  7. ETHAMBUTOL HYDROCHLORIDE [Suspect]
     Active Substance: ETHAMBUTOL HYDROCHLORIDE
     Indication: Tuberculosis
     Dosage: 1500 MILLIGRAM, DAILY
     Route: 048
     Dates: start: 20241114, end: 20241121

REACTIONS (1)
  - Cholestatic liver injury [Recovering/Resolving]

NARRATIVE: CASE EVENT DATE: 20241112
